FAERS Safety Report 10676501 (Version 1)
Quarter: 2014Q4

REPORT INFORMATION
  Report Type: Spontaneous
  Country: US (occurrence: None)
  Receive Date: 20141223
  Receipt Date: 20141223
  Transmission Date: 20150529
  Serious: Yes (Disabling, Other)
  Sender: FDA-Public Use
  Company Number: None

PATIENT
  Age: 41 Year
  Weight: 56.7 kg

DRUGS (3)
  1. BOTOX [Suspect]
     Active Substance: ONABOTULINUMTOXINA
     Indication: TRIGEMINAL NEURALGIA
     Dosage: INJECTIONS; EVERY 90 DAYS; GIVEN INTO/UNDER THE SKIN
  2. BOTOX [Suspect]
     Active Substance: ONABOTULINUMTOXINA
     Indication: CERVICAL SPINAL STENOSIS
     Dosage: INJECTIONS; EVERY 90 DAYS; GIVEN INTO/UNDER THE SKIN
  3. BOTOX [Suspect]
     Active Substance: ONABOTULINUMTOXINA
     Indication: MIGRAINE
     Dosage: INJECTIONS; EVERY 90 DAYS; GIVEN INTO/UNDER THE SKIN

REACTIONS (9)
  - Skin disorder [None]
  - Stress [None]
  - Dizziness [None]
  - Muscular weakness [None]
  - Nausea [None]
  - Activities of daily living impaired [None]
  - Dyspnoea [None]
  - Odynophagia [None]
  - Migraine [None]

NARRATIVE: CASE EVENT DATE: 20141201
